FAERS Safety Report 18134217 (Version 1)
Quarter: 2020Q3

REPORT INFORMATION
  Report Type: Spontaneous
  Country: US (occurrence: US)
  Receive Date: 20200809
  Receipt Date: 20200809
  Transmission Date: 20201103
  Serious: No
  Sender: FDA-Public Use
  Company Number: None

PATIENT

DRUGS (1)
  1. STOOL SOFTENER WITH LAXATIVE [Suspect]
     Active Substance: DOCUSATE SODIUM\SENNOSIDES A AND B

REACTIONS (1)
  - Product barcode issue [None]
